FAERS Safety Report 4847238-7 (Version None)
Quarter: 2005Q4

REPORT INFORMATION
  Report Type: 
  Country: None (occurrence: None)
  Receive Date: 20051207
  Receipt Date: 20050906
  Transmission Date: 20060501
  Serious: Yes (Other)
  Sender: FDA-Public Use
  Company Number: FR-LMS-050098

PATIENT
  Age: 77 Year
  Sex: Female

DRUGS (7)
  1. NABUCOX [Suspect]
     Dosage: 1G PER DAY
     Route: 048
     Dates: start: 20050816, end: 20050821
  2. MOPRAL [Concomitant]
  3. LIPANTHYL [Concomitant]
  4. TIMACOR [Concomitant]
  5. GLUCOPHAGE [Concomitant]
  6. CHIBRO-CADRON [Concomitant]
     Indication: BLEPHARITIS
     Dates: start: 20050725, end: 20050815
  7. STERDEX [Concomitant]
     Indication: CONJUNCTIVITIS
     Dates: start: 20050725, end: 20050815

REACTIONS (1)
  - CONJUNCTIVAL HAEMORRHAGE [None]
